FAERS Safety Report 4497621-7 (Version None)
Quarter: 2004Q4

REPORT INFORMATION
  Report Type: 
  Country: None (occurrence: None)
  Receive Date: 20041105
  Receipt Date: 20041025
  Transmission Date: 20050328
  Serious: Yes (Hospitalization)
  Sender: FDA-Public Use
  Company Number: US-JNJFOC-20040901066

PATIENT
  Age: 69 Year
  Sex: Female

DRUGS (8)
  1. DURAGESIC [Suspect]
     Route: 062
  2. CLARINEX [Concomitant]
     Route: 049
  3. HYDROCODONE [Concomitant]
     Indication: PAIN
     Route: 049
  4. LORAZEPAM [Concomitant]
     Indication: ANXIETY
     Route: 049
  5. CLOZAPINE [Concomitant]
     Indication: SLEEP DISORDER THERAPY
     Route: 049
  6. PREMARIN [Concomitant]
     Route: 049
  7. ASPIRIN [Concomitant]
     Route: 049
  8. BENADRYL [Concomitant]
     Route: 049

REACTIONS (11)
  - APPLICATION SITE DERMATITIS [None]
  - CONSTIPATION [None]
  - CYSTITIS [None]
  - DRY MOUTH [None]
  - HYPERHIDROSIS [None]
  - INSOMNIA [None]
  - KIDNEY INFECTION [None]
  - NAUSEA [None]
  - POLLAKIURIA [None]
  - PRURITUS GENERALISED [None]
  - PYREXIA [None]
